FAERS Safety Report 9749326 (Version 3)
Quarter: 2014Q1

REPORT INFORMATION
  Report Type: Report from Study
  Country: JP (occurrence: JP)
  Receive Date: 20131212
  Receipt Date: 20140108
  Transmission Date: 20141002
  Serious: Yes (Hospitalization, Other)
  Sender: FDA-Public Use
  Company Number: JP-TAKEDA-2013TJP002103

PATIENT
  Age: 69 Year
  Sex: Male
  Weight: 65 kg

DRUGS (8)
  1. LANSOPRAZOLE [Suspect]
     Indication: PROPHYLAXIS AGAINST GASTROINTESTINAL ULCER
     Dosage: 15 MG, QD
     Route: 048
     Dates: start: 20110221
  2. BAYASPIRIN [Concomitant]
     Indication: THROMBOSIS PROPHYLAXIS
     Dosage: 100 MG,  1 DAYS
     Route: 048
  3. ZYLORIC [Concomitant]
     Dosage: 100 MG, 1 DAYS
     Route: 048
  4. ADALAT L [Concomitant]
     Dosage: 60 MG, 1 DAYS
     Route: 048
  5. SIGMART [Concomitant]
     Indication: ANGINA PECTORIS
     Dosage: 15 MG, 1 DAYS
     Route: 048
  6. CRESTOR [Concomitant]
     Dosage: 2.5 MG, 1 DAYS
     Route: 048
  7. FRANDOL TAPE [Concomitant]
     Indication: ANGINA PECTORIS
     Dosage: 80 MG, 1 DAYS
     Route: 062
  8. MYSLEE [Concomitant]
     Indication: INSOMNIA
     Dosage: 10 MG, PRN
     Route: 048

REACTIONS (3)
  - Colon cancer [Recovered/Resolved]
  - Enterocolitis [Recovered/Resolved]
  - Pharyngitis [Recovered/Resolved]
